FAERS Safety Report 14860346 (Version 1)
Quarter: 2018Q2

REPORT INFORMATION
  Report Type: Spontaneous
  Country: FR (occurrence: FR)
  Receive Date: 20180508
  Receipt Date: 20180508
  Transmission Date: 20180711
  Serious: Yes (Other)
  Sender: FDA-Public Use
  Company Number: FR-JNJFOC-20180505714

PATIENT

DRUGS (1)
  1. INFLIXIMAB, RECOMBINANT [Suspect]
     Active Substance: INFLIXIMAB
     Indication: UVEITIS
     Route: 042

REACTIONS (4)
  - Mycobacterium marinum infection [Unknown]
  - Off label use [Unknown]
  - Necrotising fasciitis streptococcal [Unknown]
  - Product use in unapproved indication [Unknown]
